FAERS Safety Report 9160621 (Version 1)
Quarter: 2013Q1

REPORT INFORMATION
  Report Type: Spontaneous
  Country: US (occurrence: US)
  Receive Date: 20130313
  Receipt Date: 20130313
  Transmission Date: 20140127
  Serious: Yes (Hospitalization, Other)
  Sender: FDA-Public Use
  Company Number: US-PFIZER INC-2013079409

PATIENT
  Age: 78 Year
  Sex: Male

DRUGS (6)
  1. IRINOTECAN HCL [Suspect]
     Indication: COLON CANCER METASTATIC
     Dosage: 125 MG/M2, UNK
     Dates: start: 200604
  2. CETUXIMAB [Concomitant]
     Indication: COLON CANCER
     Dosage: 400 MG/M2 LOADING DOSE
     Dates: start: 200604
  3. ATORVASTATIN [Concomitant]
  4. LANSOPRAZOLE [Concomitant]
  5. QUINAPRIL [Concomitant]
  6. METOPROLOL [Concomitant]

REACTIONS (6)
  - Hyperbilirubinaemia [Recovered/Resolved]
  - Cholangitis [Recovered/Resolved]
  - Cholestasis [Recovered/Resolved]
  - Diarrhoea [Unknown]
  - Enteritis [Unknown]
  - Neutropenia [Unknown]
